FAERS Safety Report 19380782 (Version 2)
Quarter: 2021Q3

REPORT INFORMATION
  Report Type: Spontaneous
  Country: JP (occurrence: JP)
  Receive Date: 20210607
  Receipt Date: 20210716
  Transmission Date: 20211014
  Serious: Yes (Other)
  Sender: FDA-Public Use
  Company Number: JP-ROCHE-2844197

PATIENT
  Age: 69 Year
  Sex: Female

DRUGS (11)
  1. LUCENTIS [Suspect]
     Active Substance: RANIBIZUMAB
     Route: 031
  2. LUCENTIS [Suspect]
     Active Substance: RANIBIZUMAB
     Route: 031
  3. LUCENTIS [Suspect]
     Active Substance: RANIBIZUMAB
     Indication: AGE-RELATED MACULAR DEGENERATION
     Route: 031
  4. LUCENTIS [Suspect]
     Active Substance: RANIBIZUMAB
     Route: 031
  5. LUCENTIS [Suspect]
     Active Substance: RANIBIZUMAB
     Route: 031
  6. LUCENTIS [Suspect]
     Active Substance: RANIBIZUMAB
     Indication: POLYPOIDAL CHOROIDAL VASCULOPATHY
     Route: 031
  7. LUCENTIS [Suspect]
     Active Substance: RANIBIZUMAB
     Route: 031
  8. LUCENTIS [Suspect]
     Active Substance: RANIBIZUMAB
     Route: 031
  9. LUCENTIS [Suspect]
     Active Substance: RANIBIZUMAB
     Route: 031
  10. AFLIBERCEPT [Concomitant]
     Active Substance: AFLIBERCEPT
  11. LUCENTIS [Suspect]
     Active Substance: RANIBIZUMAB
     Route: 031

REACTIONS (1)
  - Disease progression [Unknown]
